FAERS Safety Report 4794995-4 (Version None)
Quarter: 2005Q4

REPORT INFORMATION
  Report Type: 
  Country: None (occurrence: None)
  Receive Date: 20051006
  Receipt Date: 20050926
  Transmission Date: 20060501
  Serious: Yes (Death)
  Sender: FDA-Public Use
  Company Number: 2005JP001666

PATIENT
  Age: 84 Year
  Sex: Male

DRUGS (11)
  1. FUNGUARD (MICAFUNGIN) INJECTION [Suspect]
     Indication: CANDIDIASIS
     Dosage: SEE IMAGE
     Route: 041
     Dates: start: 20050726, end: 20050729
  2. FUNGUARD (MICAFUNGIN) INJECTION [Suspect]
     Indication: CANDIDIASIS
     Dosage: SEE IMAGE
     Route: 041
     Dates: start: 20050810, end: 20050813
  3. PRODIF (FOSFLUCONAZOLE) [Suspect]
     Indication: CANDIDIASIS
     Dosage: SEE IMAGE
     Route: 042
     Dates: start: 20050730, end: 20050802
  4. PRODIF (FOSFLUCONAZOLE) [Suspect]
     Indication: CANDIDIASIS
     Dosage: SEE IMAGE
     Route: 042
     Dates: start: 20050803, end: 20050809
  5. MEROPEN (MEROPENEM) INJECTION [Suspect]
     Indication: CANDIDIASIS
     Dosage: SEE IMAGE
     Route: 042
     Dates: start: 20050730, end: 20050802
  6. MEROPEN (MEROPENEM) INJECTION [Suspect]
     Indication: CANDIDIASIS
     Dosage: SEE IMAGE
     Route: 042
     Dates: start: 20050803, end: 20050809
  7. MEROPEN (MEROPENEM) [Concomitant]
  8. BROACT (CEFPIROME SULFATE) INJECTION [Concomitant]
  9. CIPROXAN-IV(CIPROFOLOXACIN) INJECTION [Concomitant]
  10. MIRACLID (ULINASTATIN) INJECTION [Concomitant]
  11. REMINARON (GABEXATE MESILATE) [Concomitant]

REACTIONS (18)
  - BLOOD PRESSURE DECREASED [None]
  - CARDIO-RESPIRATORY ARREST [None]
  - CEREBRAL INFARCTION [None]
  - DECUBITUS ULCER [None]
  - DEPRESSED LEVEL OF CONSCIOUSNESS [None]
  - DISSEMINATED INTRAVASCULAR COAGULATION [None]
  - HEPATIC FAILURE [None]
  - INFLAMMATION [None]
  - INTRA-ABDOMINAL HAEMORRHAGE [None]
  - PYREXIA [None]
  - RENAL FAILURE [None]
  - RESPIRATORY ARREST [None]
  - SEPSIS [None]
  - SEPTIC SHOCK [None]
  - SPLENIC RUPTURE [None]
  - STAPHYLOCOCCAL INFECTION [None]
  - SYSTEMIC CANDIDA [None]
  - WHITE BLOOD CELL COUNT DECREASED [None]
